FAERS Safety Report 6014228-0 (Version None)
Quarter: 2008Q4

REPORT INFORMATION
  Report Type: 
  Country: None (occurrence: None)
  Receive Date: 20081219
  Receipt Date: 20080226
  Transmission Date: 20090506
  Serious: No
  Sender: FDA-Public Use
  Company Number: A0711932A

PATIENT
  Age: 71 Year
  Sex: Male

DRUGS (2)
  1. AVODART [Suspect]
     Indication: BENIGN PROSTATIC HYPERPLASIA
     Dosage: .5MG PER DAY
     Route: 048
     Dates: start: 20080222, end: 20080223
  2. CENTRUM SILVER [Concomitant]

REACTIONS (4)
  - DRY MOUTH [None]
  - EJACULATION DISORDER [None]
  - HEART RATE INCREASED [None]
  - NOCTURIA [None]
